FAERS Safety Report 10733927 (Version 2)
Quarter: 2015Q1

REPORT INFORMATION
  Report Type: Spontaneous
  Country: DE (occurrence: DE)
  Receive Date: 20150123
  Receipt Date: 20150212
  Transmission Date: 20150721
  Serious: Yes (Other)
  Sender: FDA-Public Use
  Company Number: DE-PFIZER INC-2014325978

PATIENT
  Age: 58 Year
  Sex: Male
  Weight: 83 kg

DRUGS (4)
  1. TORISEL [Suspect]
     Active Substance: TEMSIROLIMUS
     Indication: METASTATIC RENAL CELL CARCINOMA
     Dosage: 25 MG, IN 500ML E154 (NACL ISOTINIC COMMON SALT SOLUTION 0.9 %) PER INFUSION, WEEKLY
     Dates: start: 20140815, end: 20141124
  2. ONDANSETRON [Concomitant]
     Active Substance: ONDANSETRON
     Dosage: UNK
     Dates: start: 20140815
  3. EMEND [Concomitant]
     Active Substance: APREPITANT
     Dosage: UNK
     Dates: start: 20140815, end: 20141124
  4. MCP [Concomitant]
     Active Substance: METOCLOPRAMIDE HYDROCHLORIDE
     Dosage: UNK
     Dates: start: 20140815

REACTIONS (3)
  - Anaphylactic reaction [Recovered/Resolved]
  - Spinal pain [Recovered/Resolved]
  - Erythema [Recovered/Resolved]

NARRATIVE: CASE EVENT DATE: 20141124
